FAERS Safety Report 7792632-8 (Version None)
Quarter: 2011Q4

REPORT INFORMATION
  Report Type: 
  Country: None (occurrence: None)
  Receive Date: 20111003
  Receipt Date: 20110921
  Transmission Date: 20120403
  Serious: No
  Sender: FDA-Public Use
  Company Number: US-B.I. PHARMACEUTICALS,INC./RIDGEFIELD-2011-BP-08497BP

PATIENT
  Sex: Female

DRUGS (10)
  1. LEVOXYL [Concomitant]
     Indication: HYPOTHYROIDISM
     Dosage: 75 MG
  2. PRADAXA [Suspect]
     Indication: TRANSIENT ISCHAEMIC ATTACK
  3. CALCIUM CARBONATE [Concomitant]
     Indication: OSTEOPOROSIS
  4. MAGNESIUM [Concomitant]
     Indication: OSTEOPOROSIS
  5. PRADAXA [Suspect]
     Indication: HEART RATE IRREGULAR
  6. VITAMIN D [Concomitant]
     Indication: OSTEOPOROSIS
  7. DILTIAZEM HCL [Concomitant]
     Indication: HEART RATE IRREGULAR
  8. PRADAXA [Suspect]
     Indication: ATRIAL FIBRILLATION
     Dosage: 300 MG
     Route: 048
     Dates: start: 20110218, end: 20110801
  9. LUMIGAN [Concomitant]
     Indication: GLAUCOMA
     Route: 031
  10. DILTIAZEM HCL [Concomitant]
     Indication: ATRIAL FIBRILLATION

REACTIONS (4)
  - BLOOD URINE PRESENT [None]
  - PAIN IN EXTREMITY [None]
  - URINARY TRACT INFECTION [None]
  - OEDEMA PERIPHERAL [None]
